FAERS Safety Report 4622505-0 (Version None)
Quarter: 2005Q1

REPORT INFORMATION
  Report Type: 
  Country: None (occurrence: None)
  Receive Date: 20050325
  Receipt Date: 20050325
  Transmission Date: 20050727
  Serious: Yes (Other)
  Sender: FDA-Public Use
  Company Number: None

PATIENT
  Age: 54 Year
  Sex: Female
  Weight: 86.1834 kg

DRUGS (1)
  1. ENBREL [Suspect]
     Indication: RHEUMATOID ARTHRITIS
     Dosage: 1 25MG SHOT 2X WK
     Dates: start: 20041130

REACTIONS (4)
  - BACK PAIN [None]
  - MYELITIS TRANSVERSE [None]
  - PARAESTHESIA [None]
  - VOMITING [None]
